FAERS Safety Report 14795114 (Version 1)
Quarter: 2018Q2

REPORT INFORMATION
  Report Type: Spontaneous
  Country: FR (occurrence: FR)
  Receive Date: 20180423
  Receipt Date: 20180423
  Transmission Date: 20180711
  Serious: Yes (Hospitalization)
  Sender: FDA-Public Use
  Company Number: FR-PFIZER INC-2018164979

PATIENT
  Age: 67 Year
  Sex: Female
  Weight: 102 kg

DRUGS (6)
  1. TOVIAZ [Suspect]
     Active Substance: FESOTERODINE FUMARATE
     Indication: URINARY INCONTINENCE
     Dosage: 4 MG, 1X/DAY
     Route: 048
     Dates: start: 20180302, end: 20180307
  2. CEFTRIAXONE EG [Suspect]
     Active Substance: CEFTRIAXONE SODIUM
     Indication: DEVICE RELATED INFECTION
     Dosage: 4 G, DAILY, 1-0-1
     Route: 042
     Dates: start: 20180209, end: 20180307
  3. ENALAPRIL EG [Concomitant]
     Active Substance: ENALAPRIL
     Indication: HYPERTENSION
     Dosage: 20 MG, 1X/DAY
     Route: 048
     Dates: end: 20180307
  4. FLAGYL [Suspect]
     Active Substance: METRONIDAZOLE\METRONIDAZOLE HYDROCHLORIDE
     Indication: DEVICE RELATED INFECTION
     Dosage: 1500 MG, DAILY, 1-1-4
     Route: 048
     Dates: start: 20180202, end: 20180307
  5. RABEPRAZOLE EG LABO [Concomitant]
     Indication: PEPTIC ULCER
     Dosage: 20 MG, 1X/DAY
     Route: 048
     Dates: end: 20180307
  6. VANCOMYCINE SANDOZ [Suspect]
     Active Substance: VANCOMYCIN
     Dosage: 4 G, DAILY, 1-0-1
     Route: 042
     Dates: start: 20180202, end: 20180307

REACTIONS (1)
  - Rash maculo-papular [Not Recovered/Not Resolved]

NARRATIVE: CASE EVENT DATE: 20180306
